FAERS Safety Report 15335942 (Version 2)
Quarter: 2018Q3

REPORT INFORMATION
  Report Type: Spontaneous
  Country: GB (occurrence: FR)
  Receive Date: 20180830
  Receipt Date: 20180919
  Transmission Date: 20181010
  Serious: Yes (Hospitalization)
  Sender: FDA-Public Use
  Company Number: FR-FRESENIUS KABI-FK201808991

PATIENT
  Age: 59 Year
  Sex: Male
  Weight: 91 kg

DRUGS (20)
  1. OXALIPLATIN ACCORD [Suspect]
     Active Substance: OXALIPLATIN
     Indication: PANCREATIC CARCINOMA
     Dosage: C1 27/03/2018 ; C2 10/04/2018 ; C3 24/04/2018 ; C4 09/05/2018 ; C5 23/05/2018
     Route: 041
     Dates: start: 20180327, end: 20180523
  2. IRBESARTAN. [Concomitant]
     Active Substance: IRBESARTAN
     Indication: PRODUCT USED FOR UNKNOWN INDICATION
     Route: 065
  3. LANTUS [Concomitant]
     Active Substance: INSULIN GLARGINE
     Indication: PRODUCT USED FOR UNKNOWN INDICATION
     Route: 065
  4. HYDROCHLOROTHIAZIDE. [Concomitant]
     Active Substance: HYDROCHLOROTHIAZIDE
     Indication: PRODUCT USED FOR UNKNOWN INDICATION
     Route: 065
  5. AERIUS [Concomitant]
     Active Substance: DESLORATADINE
     Indication: PRODUCT USED FOR UNKNOWN INDICATION
     Route: 065
  6. IRINOTECAN 20 MG/ML CONCENTRATE FOR SOLUTION FOR INFUSION [Suspect]
     Active Substance: IRINOTECAN
     Dosage: C1 27/03/2018 ; C2 10/04/2018 ; C3 24/04/2018 ; C4 09/05/2018 ; C5 23/05/2018
     Route: 041
     Dates: start: 20180327, end: 20180523
  7. METHYLPREDNISOLONE. [Concomitant]
     Active Substance: METHYLPREDNISOLONE
     Indication: PRODUCT USED FOR UNKNOWN INDICATION
     Route: 065
  8. ZOPHREN [Concomitant]
     Active Substance: ONDANSETRON
     Indication: PRODUCT USED FOR UNKNOWN INDICATION
     Route: 065
  9. FLUOXETINE [Concomitant]
     Active Substance: FLUOXETINE HYDROCHLORIDE
     Indication: PRODUCT USED FOR UNKNOWN INDICATION
     Route: 065
  10. BROMAZEPAM [Concomitant]
     Active Substance: BROMAZEPAM
     Indication: PRODUCT USED FOR UNKNOWN INDICATION
     Route: 065
  11. FLUOROURACIL ACCORD [Suspect]
     Active Substance: FLUOROURACIL
     Indication: PANCREATIC CARCINOMA
     Dosage: C1 27/03/2018 ; C2 10/04/2018 ; C3 24/04/2018 ; C4 09/05/2018 ; C5 23/05/2018
     Route: 041
     Dates: start: 20180327, end: 20180523
  12. ATROPINE. [Concomitant]
     Active Substance: ATROPINE
     Indication: PRODUCT USED FOR UNKNOWN INDICATION
     Route: 065
  13. BISOPROLOL [Concomitant]
     Active Substance: BISOPROLOL
     Indication: PRODUCT USED FOR UNKNOWN INDICATION
     Route: 065
  14. IRINOTECAN 20 MG/ML CONCENTRATE FOR SOLUTION FOR INFUSION [Suspect]
     Active Substance: IRINOTECAN
     Indication: PANCREATIC CARCINOMA
     Dosage: C1 27/03/2018 ; C2 10/04/2018 ; C3 24/04/2018 ; C4 09/05/2018 ; C5 23/05/2018
     Route: 041
     Dates: start: 20180327, end: 20180523
  15. ZARZIO [Concomitant]
     Active Substance: FILGRASTIM
     Indication: PRODUCT USED FOR UNKNOWN INDICATION
     Route: 065
  16. CALCIUM FOLINATE [Concomitant]
     Active Substance: LEUCOVORIN CALCIUM
     Indication: PRODUCT USED FOR UNKNOWN INDICATION
  17. OXALIPLATIN ACCORD [Suspect]
     Active Substance: OXALIPLATIN
     Dosage: C1 27/03/2018 ; C2 10/04/2018 ; C3 24/04/2018 ; C4 09/05/2018 ; C5 23/05/2018
     Route: 041
     Dates: start: 20180327, end: 20180523
  18. SIMVASTATINE [Concomitant]
     Active Substance: SIMVASTATIN
     Indication: PRODUCT USED FOR UNKNOWN INDICATION
     Route: 065
  19. ASPEGIC [Concomitant]
     Active Substance: ASPIRIN DL-LYSINE
     Indication: PRODUCT USED FOR UNKNOWN INDICATION
     Route: 065
  20. EMEND [Concomitant]
     Active Substance: APREPITANT
     Indication: PRODUCT USED FOR UNKNOWN INDICATION
     Route: 065

REACTIONS (1)
  - Cholangitis [Recovered/Resolved]

NARRATIVE: CASE EVENT DATE: 201805
